FAERS Safety Report 7986425-6 (Version None)
Quarter: 2011Q4

REPORT INFORMATION
  Report Type: 
  Country: None (occurrence: None)
  Receive Date: 20111216
  Receipt Date: 20111212
  Transmission Date: 20120403
  Serious: Yes (Other)
  Sender: FDA-Public Use
  Company Number: BR-ABBOTT-11P-020-0882799-00

PATIENT
  Sex: Female
  Weight: 55 kg

DRUGS (4)
  1. GLYBURIDE [Concomitant]
     Indication: DIABETES MELLITUS
     Route: 048
  2. HUMIRA [Suspect]
     Indication: PSORIATIC ARTHROPATHY
     Route: 058
     Dates: start: 20101108, end: 20111001
  3. METFORMIN HCL [Concomitant]
     Indication: DIABETES MELLITUS
     Dosage: 1 TAB AFTER BREAKFAST,1 TAB AFTER DINNER
     Route: 048
  4. CLOXAZOLAM [Concomitant]
     Indication: PSORIASIS
     Route: 048

REACTIONS (2)
  - INTESTINAL MASS [None]
  - ABDOMINAL PAIN [None]
